FAERS Safety Report 5162159-0 (Version None)
Quarter: 2006Q4

REPORT INFORMATION
  Report Type: 
  Country: None (occurrence: None)
  Receive Date: 20061121
  Receipt Date: 20061110
  Transmission Date: 20070319
  Serious: Yes (Hospitalization, Other)
  Sender: FDA-Public Use
  Company Number: 6027265

PATIENT
  Age: 64 Year
  Sex: Male

DRUGS (1)
  1. BISOPROLOL FUMARATE [Suspect]
     Indication: ISCHAEMIC CARDIOMYOPATHY
     Dosage: ORAL
     Route: 048

REACTIONS (5)
  - ACUTE RESPIRATORY DISTRESS SYNDROME [None]
  - CARDIAC FAILURE [None]
  - CARDIOGENIC SHOCK [None]
  - OXYGEN SATURATION DECREASED [None]
  - THERAPY NON-RESPONDER [None]
